FAERS Safety Report 18736004 (Version 4)
Quarter: 2021Q3

REPORT INFORMATION
  Report Type: Spontaneous
  Country: GB (occurrence: GB)
  Receive Date: 20210113
  Receipt Date: 20210708
  Transmission Date: 20211014
  Serious: Yes (Death, Other)
  Sender: FDA-Public Use
  Company Number: GB-MYLANLABS-2021M1001532

PATIENT
  Age: 53 Year
  Sex: Female

DRUGS (1)
  1. CLOZARIL [Suspect]
     Active Substance: CLOZAPINE
     Indication: SCHIZOPHRENIA
     Dosage: UNK
     Route: 048
     Dates: start: 20100503, end: 20210703

REACTIONS (5)
  - Hepatic cancer [Fatal]
  - Metastases to lung [Fatal]
  - Breast cancer [Fatal]
  - Metastases to liver [Fatal]
  - Off label use [Unknown]

NARRATIVE: CASE EVENT DATE: 20210129
